FAERS Safety Report 22149181 (Version 1)
Quarter: 2023Q1

REPORT INFORMATION
  Report Type: Report from Study
  Country: CA (occurrence: CA)
  Receive Date: 20230329
  Receipt Date: 20230329
  Transmission Date: 20230417
  Serious: Yes (Hospitalization, Other)
  Sender: FDA-Public Use
  Company Number: CA-JNJFOC-20230126729

PATIENT
  Age: 61 Year
  Sex: Male

DRUGS (1)
  1. SIMPONI [Suspect]
     Active Substance: GOLIMUMAB
     Indication: Ankylosing spondylitis
     Route: 058
     Dates: start: 20220225

REACTIONS (6)
  - Pneumonia [Unknown]
  - Atrial fibrillation [Unknown]
  - Fall [Unknown]
  - Rib fracture [Unknown]
  - Haemothorax [Unknown]
  - Arthralgia [Unknown]
